FAERS Safety Report 12755603 (Version 1)
Quarter: 2016Q3

REPORT INFORMATION
  Report Type: Report from Study
  Country: US (occurrence: US)
  Receive Date: 20160916
  Receipt Date: 20160916
  Transmission Date: 20161109
  Serious: Yes (Other)
  Sender: FDA-Public Use
  Company Number: US-ABBVIE-16K-163-1724292-00

PATIENT
  Age: 61 Year
  Sex: Female

DRUGS (1)
  1. HUMIRA [Suspect]
     Active Substance: ADALIMUMAB
     Indication: CROHN^S DISEASE
     Route: 058
     Dates: start: 201509

REACTIONS (4)
  - Intestinal obstruction [Unknown]
  - Gingival swelling [Unknown]
  - Nasal ulcer [Unknown]
  - Nausea [Unknown]

NARRATIVE: CASE EVENT DATE: 20160816
